APPROVED DRUG PRODUCT: BRETYLIUM TOSYLATE
Active Ingredient: BRETYLIUM TOSYLATE
Strength: 50MG/ML
Dosage Form/Route: INJECTABLE;INJECTION
Application: A070891 | Product #001
Applicant: LUITPOLD PHARMACEUTICALS INC
Approved: Jul 26, 1988 | RLD: No | RS: No | Type: DISCN